FAERS Safety Report 5267621-8 (Version None)
Quarter: 2007Q1

REPORT INFORMATION
  Report Type: 
  Country: None (occurrence: None)
  Receive Date: 20070316
  Receipt Date: 20070308
  Transmission Date: 20070707
  Serious: Yes (Death, Hospitalization)
  Sender: FDA-Public Use
  Company Number: ES-AMGEN-UK211064

PATIENT
  Sex: Female

DRUGS (16)
  1. MIMPARA [Suspect]
     Indication: DRUG USE FOR UNKNOWN INDICATION
     Route: 048
     Dates: start: 20051201, end: 20061120
  2. SEVELAMER HCL [Concomitant]
     Route: 048
     Dates: start: 20050101, end: 20070101
  3. CALCIUM [Concomitant]
     Route: 048
     Dates: start: 20050101, end: 20070101
  4. ROCALTROL [Concomitant]
     Route: 048
     Dates: start: 20060201, end: 20060301
  5. CALCIJEX [Concomitant]
     Route: 042
     Dates: start: 20060301, end: 20060601
  6. INSULATARD [Concomitant]
     Route: 058
     Dates: start: 20060531
  7. OMEPRAZOLE [Concomitant]
     Route: 048
     Dates: start: 20041122
  8. INNOHEP [Concomitant]
     Route: 042
     Dates: start: 20050323
  9. VENOFER [Concomitant]
     Route: 042
     Dates: start: 20060630
  10. GEMFIBROZIL [Concomitant]
     Route: 048
     Dates: start: 20041122
  11. ACTRAPID INSULIN NOVO [Concomitant]
     Route: 058
     Dates: start: 20060531
  12. DIAZEPAM [Concomitant]
     Route: 048
     Dates: start: 20060622
  13. RENAGEL [Concomitant]
     Route: 048
  14. ACFOL [Concomitant]
     Route: 048
     Dates: start: 20060704
  15. CALCIUM [Concomitant]
     Route: 048
     Dates: start: 20060322
  16. ARANESP [Concomitant]
     Route: 042
     Dates: start: 20060306

REACTIONS (6)
  - CARDIAC FAILURE [None]
  - GENERAL PHYSICAL HEALTH DETERIORATION [None]
  - INFECTED SKIN ULCER [None]
  - OEDEMA [None]
  - OSTEOARTHRITIS [None]
  - SKIN ULCER HAEMORRHAGE [None]
